FAERS Safety Report 17978833 (Version 4)
Quarter: 2021Q3

REPORT INFORMATION
  Report Type: Spontaneous
  Country: US (occurrence: US)
  Receive Date: 20200703
  Receipt Date: 20210812
  Transmission Date: 20211014
  Serious: Yes (Other)
  Sender: FDA-Public Use
  Company Number: US-GILEAD-2020-0478075

PATIENT
  Sex: Female

DRUGS (3)
  1. VIREAD [Suspect]
     Active Substance: TENOFOVIR DISOPROXIL FUMARATE
     Indication: HIV INFECTION
     Dosage: UNK
     Route: 048
     Dates: start: 2015, end: 201805
  2. TRUVADA [Suspect]
     Active Substance: EMTRICITABINE\TENOFOVIR DISOPROXIL FUMARATE
     Indication: HIV INFECTION
     Dosage: UNK
     Route: 065
     Dates: start: 201501, end: 201805
  3. DESCOVY [Concomitant]
     Active Substance: EMTRICITABINE\TENOFOVIR ALAFENAMIDE FUMARATE

REACTIONS (7)
  - Bone density decreased [Unknown]
  - Bone loss [Unknown]
  - Osteonecrosis [Unknown]
  - Osteoporosis [Not Recovered/Not Resolved]
  - Multiple fractures [Not Recovered/Not Resolved]
  - Skeletal injury [Unknown]
  - Renal injury [Unknown]

NARRATIVE: CASE EVENT DATE: 2017
